FAERS Safety Report 5641334-2 (Version None)
Quarter: 2008Q1

REPORT INFORMATION
  Report Type: 
  Country: None (occurrence: None)
  Receive Date: 20080227
  Receipt Date: 20070605
  Transmission Date: 20080703
  Serious: No
  Sender: FDA-Public Use
  Company Number: A0653851A

PATIENT
  Age: 58 Year
  Sex: Female

DRUGS (2)
  1. NICORETTE [Suspect]
     Indication: SMOKING CESSATION THERAPY
     Route: 002
  2. NICORETTE [Suspect]
     Indication: SMOKING CESSATION THERAPY

REACTIONS (2)
  - INTENTIONAL DRUG MISUSE [None]
  - STOMACH DISCOMFORT [None]
